FAERS Safety Report 19643497 (Version 2)
Quarter: 2021Q3

REPORT INFORMATION
  Report Type: Spontaneous
  Country: CA (occurrence: CA)
  Receive Date: 20210731
  Receipt Date: 20210913
  Transmission Date: 20211014
  Serious: Yes (Hospitalization, Other)
  Sender: FDA-Public Use
  Company Number: NVSC2021CA165226

PATIENT
  Sex: Male

DRUGS (2)
  1. HYRIMOZ [Suspect]
     Active Substance: ADALIMUMAB-ADAZ
     Indication: ANKYLOSING SPONDYLITIS
     Dosage: 40 MG, Q2W
     Route: 058
     Dates: start: 20210707
  2. HYRIMOZ [Suspect]
     Active Substance: ADALIMUMAB-ADAZ
     Dosage: UNK
     Route: 065
     Dates: start: 20210804

REACTIONS (14)
  - Decreased appetite [Unknown]
  - Musculoskeletal chest pain [Unknown]
  - Headache [Unknown]
  - Body temperature increased [Unknown]
  - Asthenia [Unknown]
  - Back pain [Recovering/Resolving]
  - Nasopharyngitis [Unknown]
  - Psoriasis [Recovering/Resolving]
  - Chest pain [Unknown]
  - Abdominal rigidity [Recovering/Resolving]
  - Fatigue [Recovering/Resolving]
  - Tremor [Unknown]
  - Dyspnoea [Unknown]
  - Paraesthesia [Recovering/Resolving]

NARRATIVE: CASE EVENT DATE: 20210715
